FAERS Safety Report 16905571 (Version 4)
Quarter: 2020Q1

REPORT INFORMATION
  Report Type: Report from Study
  Country: US (occurrence: US)
  Receive Date: 20191010
  Receipt Date: 20200116
  Transmission Date: 20200409
  Serious: Yes (Other)
  Sender: FDA-Public Use
  Company Number: US-TESARO-2019-TSO00724-US

PATIENT
  Age: 75 Year
  Sex: Female
  Weight: 61.22 kg

DRUGS (6)
  1. NIRAPARIB [Suspect]
     Active Substance: NIRAPARIB
     Indication: OVARIAN CANCER
     Dosage: 200 MG, QPM WITH FOOD
     Route: 048
     Dates: start: 20190129, end: 20190212
  2. METOPROLOL. [Suspect]
     Active Substance: METOPROLOL
     Indication: BLOOD PRESSURE INCREASED
     Dosage: UNK
     Route: 065
  3. NIRAPARIB [Suspect]
     Active Substance: NIRAPARIB
     Dosage: 100 MG, QD
     Route: 048
  4. NIRAPARIB [Suspect]
     Active Substance: NIRAPARIB
     Dosage: 100 MG, QPM WITH FOOD
     Route: 048
  5. DOXYCYCLINE HYCLATE. [Concomitant]
     Active Substance: DOXYCYCLINE HYCLATE
     Indication: PRODUCT USED FOR UNKNOWN INDICATION
     Dosage: 100 MG, UNK
  6. NIRAPARIB [Suspect]
     Active Substance: NIRAPARIB
     Dosage: 100 MG, QPM
     Route: 048
     Dates: start: 20190305

REACTIONS (41)
  - Supraventricular tachycardia [Unknown]
  - Malaise [Not Recovered/Not Resolved]
  - Peripheral swelling [Unknown]
  - Dyspnoea [Unknown]
  - Decreased appetite [Unknown]
  - Product physical issue [Unknown]
  - Feeling abnormal [Unknown]
  - Asthenia [Unknown]
  - Hypertension [Not Recovered/Not Resolved]
  - Neutrophil count decreased [Unknown]
  - Basal cell carcinoma [Recovered/Resolved]
  - Hiccups [Recovered/Resolved]
  - Loss of personal independence in daily activities [Unknown]
  - Fatigue [Not Recovered/Not Resolved]
  - Red blood cell count decreased [Not Recovered/Not Resolved]
  - Product dose omission [Unknown]
  - Oropharyngeal pain [Unknown]
  - Memory impairment [Not Recovered/Not Resolved]
  - Temperature regulation disorder [Unknown]
  - Blood count abnormal [Unknown]
  - Alopecia [Unknown]
  - Granulocyte count decreased [Not Recovered/Not Resolved]
  - Blood cholesterol increased [Not Recovered/Not Resolved]
  - Laboratory test abnormal [Unknown]
  - Flatulence [Unknown]
  - Nausea [Unknown]
  - Dizziness [Unknown]
  - Skin discolouration [Unknown]
  - Hot flush [Unknown]
  - Pruritus [Not Recovered/Not Resolved]
  - Urine odour abnormal [Unknown]
  - Insomnia [Not Recovered/Not Resolved]
  - Platelet count decreased [Not Recovered/Not Resolved]
  - Productive cough [Not Recovered/Not Resolved]
  - Product dispensing error [Unknown]
  - Musculoskeletal pain [Unknown]
  - Erythema [Unknown]
  - Mean platelet volume decreased [Not Recovered/Not Resolved]
  - Headache [Not Recovered/Not Resolved]
  - White blood cell count decreased [Not Recovered/Not Resolved]
  - Palpitations [Recovered/Resolved]

NARRATIVE: CASE EVENT DATE: 2019
